FAERS Safety Report 14729723 (Version 2)
Quarter: 2018Q2

REPORT INFORMATION
  Report Type: Spontaneous
  Country: DE (occurrence: DE)
  Receive Date: 20180406
  Receipt Date: 20180508
  Transmission Date: 20180711
  Serious: Yes (Other)
  Sender: FDA-Public Use
  Company Number: DE-SA-2018SA090994

PATIENT
  Sex: Female

DRUGS (2)
  1. METAMIZOLE [Concomitant]
     Active Substance: METAMIZOLE
     Route: 065
  2. LEMTRADA [Suspect]
     Active Substance: ALEMTUZUMAB
     Indication: MULTIPLE SCLEROSIS
     Route: 041
     Dates: start: 2017

REACTIONS (1)
  - Thrombocytopenia [Unknown]
